FAERS Safety Report 21850519 (Version 1)
Quarter: 2023Q1

REPORT INFORMATION
  Report Type: Spontaneous
  Country: CA (occurrence: CA)
  Receive Date: 20230111
  Receipt Date: 20230111
  Transmission Date: 20230418
  Serious: Yes (Other)
  Sender: FDA-Public Use
  Company Number: CA-002147023-NVSC2023CA005829

PATIENT
  Age: 64 Year
  Sex: Female

DRUGS (4)
  1. CYCLOSPORINE [Suspect]
     Active Substance: CYCLOSPORINE
     Indication: Vulval disorder
     Dosage: UNK
     Route: 065
  2. CLOBETASOL [Concomitant]
     Active Substance: CLOBETASOL
     Indication: Product used for unknown indication
     Dosage: UNK
     Route: 065
  3. EMLA [Concomitant]
     Active Substance: LIDOCAINE\PRILOCAINE
     Indication: Neuralgia
     Dosage: UNK
     Route: 061
  4. PARAFFIN [Concomitant]
     Active Substance: PARAFFIN
     Indication: Vulval disorder
     Dosage: UNK
     Route: 065

REACTIONS (5)
  - Blood creatinine increased [Recovered/Resolved]
  - Hypertension [Recovered/Resolved]
  - Proteus infection [Recovered/Resolved]
  - Serratia infection [Recovered/Resolved]
  - Off label use [Recovered/Resolved]
